FAERS Safety Report 14498916 (Version 1)
Quarter: 2018Q1

REPORT INFORMATION
  Report Type: Spontaneous
  Country: US (occurrence: US)
  Receive Date: 20180206
  Receipt Date: 20180206
  Transmission Date: 20180509
  Serious: No
  Sender: FDA-Public Use
  Company Number: None

PATIENT
  Age: 61 Year
  Sex: Female

DRUGS (1)
  1. ENBREL [Suspect]
     Active Substance: ETANERCEPT
     Dosage: 1 SURECLICK PEN EVERY WEEKS SUBCUTANEOUSLY
     Route: 058
     Dates: start: 20170822

REACTIONS (2)
  - Therapy cessation [None]
  - Spinal fusion surgery [None]
